FAERS Safety Report 19936090 (Version 2)
Quarter: 2021Q4

REPORT INFORMATION
  Report Type: Spontaneous
  Country: US (occurrence: US)
  Receive Date: 20211008
  Receipt Date: 20211116
  Transmission Date: 20220303
  Serious: Yes (Other)
  Sender: FDA-Public Use
  Company Number: US-BOEHRINGERINGELHEIM-2021-BI-131660

PATIENT
  Sex: Female

DRUGS (1)
  1. SPIRIVA [Suspect]
     Active Substance: TIOTROPIUM BROMIDE MONOHYDRATE
     Indication: Respiratory disorder prophylaxis
     Dosage: LOT EXPIRY DATE 31-DEC-2022 AND 11-NOV-2022 RESPIRATORY.
     Dates: start: 202108

REACTIONS (2)
  - Macular degeneration [Not Recovered/Not Resolved]
  - Product complaint [Unknown]
